FAERS Safety Report 22355086 (Version 2)
Quarter: 2023Q2

REPORT INFORMATION
  Report Type: Spontaneous
  Country: JP (occurrence: JP)
  Receive Date: 20230523
  Receipt Date: 20230608
  Transmission Date: 20230721
  Serious: No
  Sender: FDA-Public Use
  Company Number: JP-PFIZER INC-PV202300088996

PATIENT
  Age: 56 Year
  Sex: Male
  Weight: 54.6 kg

DRUGS (11)
  1. PAXLOVID [Suspect]
     Active Substance: NIRMATRELVIR\RITONAVIR
     Indication: COVID-19 treatment
     Dosage: [PF-07321332 300 MG]/[RITONAVIR 100 MG]; 2X/DAY
     Route: 048
     Dates: start: 20230425, end: 20230429
  2. MINOCYCLINE HYDROCHLORIDE [Concomitant]
     Active Substance: MINOCYCLINE HYDROCHLORIDE
     Indication: Pemphigoid
     Dosage: 50 MG, 2X/DAY
     Route: 045
     Dates: start: 20220808
  3. PREDNISOLONE [Concomitant]
     Active Substance: PREDNISOLONE
     Indication: Pemphigoid
     Dosage: 20 MG, 2X/DAY
     Route: 045
     Dates: start: 20220808
  4. NICOTINAMIDE [Concomitant]
     Active Substance: NIACINAMIDE
     Indication: Pemphigoid
     Dosage: 1 G, 3X/DAY
     Route: 045
     Dates: start: 20220808, end: 20230426
  5. TOCOPHERYL NICOTINATE, D-.ALPHA. [Concomitant]
     Active Substance: TOCOPHERYL NICOTINATE, D-.ALPHA.
     Indication: Pemphigoid
     Dosage: 100 MG, 3X/DAY
     Route: 045
     Dates: start: 20230427
  6. FYCOMPA [Concomitant]
     Active Substance: PERAMPANEL
     Indication: Epilepsy
     Dosage: 8 MG, 1X/DAY
     Route: 045
  7. EDOXABAN TOSYLATE [Concomitant]
     Active Substance: EDOXABAN TOSYLATE
     Indication: Thrombosis prophylaxis
     Dosage: 30 MG, 1X/DAY
     Route: 045
  8. PEROSPIRONE [Concomitant]
     Active Substance: PEROSPIRONE
     Indication: Encephalopathy
     Dosage: 4 MG, 2X/DAY
     Route: 045
  9. WINTERMIN [CHLORPROMAZINE PHENOLPHTHALINATE] [Concomitant]
     Indication: Encephalopathy
     Dosage: 25 MG, 3X/DAY
     Route: 045
  10. TELMISARTAN [Concomitant]
     Active Substance: TELMISARTAN
     Indication: Hypertension
     Dosage: 80 MG, 1X/DAY
     Route: 045
  11. TRICHLORMETHIAZIDE [Concomitant]
     Active Substance: TRICHLORMETHIAZIDE
     Indication: Hypertension
     Dosage: 1 MG, 1X/DAY
     Route: 045

REACTIONS (2)
  - Off label use [Unknown]
  - Wrong technique in product usage process [Unknown]

NARRATIVE: CASE EVENT DATE: 20230425
